FAERS Safety Report 10159401 (Version 2)
Quarter: 2014Q3

REPORT INFORMATION
  Report Type: Spontaneous
  Country: US (occurrence: US)
  Receive Date: 20140508
  Receipt Date: 20140929
  Transmission Date: 20150326
  Serious: Yes (Hospitalization, Other)
  Sender: FDA-Public Use
  Company Number: US-BAYER-2014-065345

PATIENT
  Age: 39 Year
  Sex: Female

DRUGS (18)
  1. YAZ [Suspect]
     Active Substance: DROSPIRENONE\ETHINYL ESTRADIOL
     Indication: ACNE
  2. OCELLA [Suspect]
     Active Substance: DROSPIRENONE\ETHINYL ESTRADIOL
     Indication: ACNE
  3. KLONOPIN [Concomitant]
     Active Substance: CLONAZEPAM
  4. METHYLPREDNISOLONE [Concomitant]
     Active Substance: METHYLPREDNISOLONE
     Dosage: 4 MG, UNK
  5. ALPRAZOLAM. [Concomitant]
     Active Substance: ALPRAZOLAM
     Dosage: 0.5 MG, UNK
     Dates: start: 20041014, end: 20060507
  6. KETEK PAK [Concomitant]
     Dosage: 400 MG, UNK
  7. COUMADIN [Concomitant]
     Active Substance: WARFARIN SODIUM
     Indication: RENAL INFARCT
  8. RISPERDAL [Concomitant]
     Active Substance: RISPERIDONE
  9. LEXAPRO [Concomitant]
     Active Substance: ESCITALOPRAM OXALATE
  10. ABILIFY [Concomitant]
     Active Substance: ARIPIPRAZOLE
     Dosage: 10 MG, UNK
  11. PERPHENAZINE. [Concomitant]
     Active Substance: PERPHENAZINE
     Dosage: 2 MG, UNK
     Dates: start: 20041027, end: 20050701
  12. GUAIFENEX PSE [Concomitant]
     Dosage: 600/120
  13. LUNESTA [Concomitant]
     Active Substance: ESZOPICLONE
     Dosage: 2 MG, UNK
  14. AMBIEN [Concomitant]
     Active Substance: ZOLPIDEM TARTRATE
     Dosage: 10 MG, UNK
     Dates: start: 20041015, end: 20060507
  15. YASMIN [Suspect]
     Active Substance: DROSPIRENONE\ETHINYL ESTRADIOL
     Indication: ACNE
  16. ZOLOFT [Concomitant]
     Active Substance: SERTRALINE HYDROCHLORIDE
     Dosage: 100 MG, UNK
     Dates: start: 20050510, end: 20060304
  17. LAMICTAL [Concomitant]
     Active Substance: LAMOTRIGINE
  18. ADVAIR HFA [Concomitant]
     Active Substance: FLUTICASONE PROPIONATE\SALMETEROL XINAFOATE
     Dosage: 500/50 DISKUS
     Dates: start: 20050329, end: 20050503

REACTIONS (5)
  - Renal infarct [None]
  - Cerebral infarction [None]
  - Acute myocardial infarction [None]
  - Injury [None]
  - Pain [None]

NARRATIVE: CASE EVENT DATE: 20050716
